FAERS Safety Report 10631372 (Version 1)
Quarter: 2014Q4

REPORT INFORMATION
  Report Type: Spontaneous
  Country: FR (occurrence: None)
  Receive Date: 20141203
  Receipt Date: 20141203
  Transmission Date: 20150529
  Serious: Yes (Other)
  Sender: FDA-Public Use
  Company Number: FR-20140386

PATIENT
  Age: 11 Year
  Sex: Female

DRUGS (1)
  1. DOTAREM [Suspect]
     Active Substance: GADOTERATE MEGLUMINE
     Indication: ACCIDENTAL EXPOSURE TO PRODUCT
     Dosage: 1 IN 1 TOTAL
     Route: 048
     Dates: start: 20140928, end: 20140928

REACTIONS (2)
  - Wrong drug administered [None]
  - Abdominal pain [None]

NARRATIVE: CASE EVENT DATE: 20140928
